FAERS Safety Report 6726990-X (Version None)
Quarter: 2010Q2

REPORT INFORMATION
  Report Type: 
  Country: None (occurrence: None)
  Receive Date: 20100517
  Receipt Date: 20100512
  Transmission Date: 20101027
  Serious: No
  Sender: FDA-Public Use
  Company Number: US-BIOGENIDEC-2010BI015798

PATIENT
  Age: 42 Year
  Sex: Female

DRUGS (5)
  1. AVONEX [Suspect]
     Indication: MULTIPLE SCLEROSIS
     Route: 030
     Dates: start: 20100420
  2. ALEVE (CAPLET) [Concomitant]
     Indication: PREMEDICATION
     Route: 048
     Dates: start: 20100420
  3. BENADRYL [Concomitant]
     Indication: PREMEDICATION
     Route: 048
     Dates: start: 20100420
  4. XANAX [Concomitant]
     Indication: PREMEDICATION
     Route: 048
     Dates: start: 20100420
  5. VICODIN [Concomitant]
     Indication: PREMEDICATION
     Route: 048
     Dates: start: 20100511

REACTIONS (5)
  - BURNING SENSATION [None]
  - FATIGUE [None]
  - HANGOVER [None]
  - HEADACHE [None]
  - INFLUENZA LIKE ILLNESS [None]
